FAERS Safety Report 21816463 (Version 1)
Quarter: 2023Q1

REPORT INFORMATION
  Report Type: Spontaneous
  Country: CA (occurrence: CA)
  Receive Date: 20230104
  Receipt Date: 20230104
  Transmission Date: 20230418
  Serious: Yes (Other)
  Sender: FDA-Public Use
  Company Number: CA-AUROBINDO-AUR-APL-2022-056650

PATIENT
  Age: 18 Year
  Sex: Female

DRUGS (1)
  1. CLINDAMYCIN [Suspect]
     Active Substance: CLINDAMYCIN
     Indication: Infection prophylaxis
     Dosage: UNK
     Route: 048

REACTIONS (3)
  - Dysphagia [Unknown]
  - Chest pain [Unknown]
  - Oesophageal pain [Unknown]
